FAERS Safety Report 17925127 (Version 1)
Quarter: 2020Q2

REPORT INFORMATION
  Report Type: Spontaneous
  Country: US (occurrence: US)
  Receive Date: 20200622
  Receipt Date: 20200622
  Transmission Date: 20200714
  Serious: Yes (Other)
  Sender: FDA-Public Use
  Company Number: US-BAYER-2020-122209

PATIENT
  Age: 42 Year
  Sex: Male

DRUGS (1)
  1. KOGENATE FS [Suspect]
     Active Substance: ANTIHEMOPHILIC FACTOR, HUMAN RECOMBINANT
     Dosage: 3200 U
     Route: 042

REACTIONS (3)
  - Product dose omission [None]
  - Haemarthrosis [Recovered/Resolved]
  - Arthritis [None]

NARRATIVE: CASE EVENT DATE: 20200608
